FAERS Safety Report 4569177-1 (Version None)
Quarter: 2005Q1

REPORT INFORMATION
  Report Type: 
  Country: None (occurrence: None)
  Receive Date: 20050203
  Receipt Date: 20050125
  Transmission Date: 20050727
  Serious: Yes (Hospitalization)
  Sender: FDA-Public Use
  Company Number: IE-JNJFOC-20050106446

PATIENT
  Age: 65 Year
  Sex: Male

DRUGS (1)
  1. DURAGESIC [Suspect]
     Indication: RHEUMATOID ARTHRITIS
     Route: 062

REACTIONS (2)
  - CELLULITIS [None]
  - DRUG INEFFECTIVE [None]
